FAERS Safety Report 5579386-0 (Version None)
Quarter: 2008Q1

REPORT INFORMATION
  Report Type: 
  Country: None (occurrence: None)
  Receive Date: 20080102
  Receipt Date: 20071221
  Transmission Date: 20080703
  Serious: Yes (Hospitalization)
  Sender: FDA-Public Use
  Company Number: FR-BRISTOL-MYERS SQUIBB COMPANY-14001572

PATIENT
  Age: 58 Year
  Sex: Female

DRUGS (2)
  1. PACLITAXEL [Suspect]
     Indication: BREAST CANCER
     Dosage: CYCLE 1: FROM 25/10/2007
     Route: 042
     Dates: start: 20071116, end: 20071116
  2. GEMZAR [Suspect]
     Indication: BREAST CANCER
     Dosage: CYCLE 1: FROM 25/10/2007
     Route: 042
     Dates: start: 20071116, end: 20071116

REACTIONS (2)
  - LUNG DISORDER [None]
  - URINARY TRACT INFECTION [None]
